FAERS Safety Report 8875526 (Version 1)
Quarter: 2012Q4

REPORT INFORMATION
  Report Type: 
  Country: AR (occurrence: AR)
  Receive Date: 20121023
  Receipt Date: 20121023
  Transmission Date: 20130627
  Serious: Yes (Death, Hospitalization, Other)
  Sender: FDA-Public Use
  Company Number: AR-ROCHE-1147750

PATIENT
  Sex: Male

DRUGS (1)
  1. LUCENTIS [Suspect]
     Indication: MACULOPATHY
     Dosage: three ampoules
     Route: 050
     Dates: start: 2011, end: 201203

REACTIONS (3)
  - Metastases to liver [Fatal]
  - Malaise [Unknown]
  - Renal disorder [Unknown]
